FAERS Safety Report 25543932 (Version 1)
Quarter: 2025Q3

REPORT INFORMATION
  Report Type: Spontaneous
  Country: US (occurrence: None)
  Receive Date: 20250710
  Receipt Date: 20250710
  Transmission Date: 20251020
  Serious: No
  Sender: FDA-CTU
  Company Number: None

PATIENT
  Age: 41 Year
  Sex: Female
  Weight: 51.75 kg

DRUGS (6)
  1. ESCITALOPRAM [Suspect]
     Active Substance: ESCITALOPRAM OXALATE
     Indication: Mixed anxiety and depressive disorder
     Dosage: OTHER QUANTITY : 30 TABLET(S);?FREQUENCY : DAILY;?
     Route: 048
     Dates: start: 20181001, end: 20241127
  2. SINGULAIR [Concomitant]
     Active Substance: MONTELUKAST SODIUM
  3. ALBUTEROL [Concomitant]
     Active Substance: ALBUTEROL
  4. VITAMINS [Concomitant]
     Active Substance: VITAMINS
  5. ZINC [Concomitant]
     Active Substance: ZINC
  6. mushroom supplements [Concomitant]

REACTIONS (6)
  - Loss of libido [None]
  - Fatigue [None]
  - Emotional disorder [None]
  - Anxiety [None]
  - Weight decreased [None]
  - Decreased appetite [None]

NARRATIVE: CASE EVENT DATE: 20241215
